FAERS Safety Report 19794476 (Version 1)
Quarter: 2021Q3

REPORT INFORMATION
  Report Type: Spontaneous
  Country: AT (occurrence: AT)
  Receive Date: 20210906
  Receipt Date: 20210906
  Transmission Date: 20211014
  Serious: Yes (Other)
  Sender: FDA-Public Use
  Company Number: AT-BRISTOL-MYERS SQUIBB COMPANY-BMS-2021-086918

PATIENT
  Age: 65 Year
  Sex: Male

DRUGS (1)
  1. ELIQUIS [Suspect]
     Active Substance: APIXABAN
     Indication: THROMBOPHLEBITIS
     Dosage: 5 MILLIGRAM, BID
     Route: 048
     Dates: start: 20210809, end: 20210827

REACTIONS (2)
  - Acute hepatic failure [Unknown]
  - Faeces pale [Unknown]

NARRATIVE: CASE EVENT DATE: 202108
